FAERS Safety Report 20718099 (Version 1)
Quarter: 2022Q2

REPORT INFORMATION
  Report Type: Spontaneous
  Country: US (occurrence: US)
  Receive Date: 20220418
  Receipt Date: 20220418
  Transmission Date: 20220721
  Serious: No
  Sender: FDA-Public Use
  Company Number: US-ORGANON-O2204USA001159

PATIENT
  Sex: Female

DRUGS (2)
  1. PREGNYL [Suspect]
     Active Substance: CHORIOGONADOTROPIN ALFA
     Indication: Infertility female
     Dosage: AS DIRECTED BY PROVIDER
     Dates: start: 20220412
  2. STERILE WATER [Suspect]
     Active Substance: WATER
     Dosage: AS DIRECTED BY PROVIDER
     Dates: start: 20220412

REACTIONS (3)
  - Injury associated with device [Recovered/Resolved]
  - Product contamination with body fluid [Unknown]
  - Product dose omission issue [Unknown]

NARRATIVE: CASE EVENT DATE: 20220412
